FAERS Safety Report 17780545 (Version 1)
Quarter: 2020Q2

REPORT INFORMATION
  Report Type: Spontaneous
  Country: US (occurrence: US)
  Receive Date: 20200514
  Receipt Date: 20200514
  Transmission Date: 20200714
  Serious: No
  Sender: FDA-Public Use
  Company Number: US-LUPIN PHARMACEUTICALS INC.-2019-05188

PATIENT
  Sex: Female

DRUGS (1)
  1. TRI-LO-MARZIA [Suspect]
     Active Substance: ETHINYL ESTRADIOL\NORGESTIMATE
     Indication: ACNE
     Dosage: UNK
     Route: 065

REACTIONS (4)
  - Metrorrhagia [Unknown]
  - Incorrect dose administered [None]
  - Product use in unapproved indication [Unknown]
  - Inappropriate schedule of product administration [Unknown]
